FAERS Safety Report 20845400 (Version 1)
Quarter: 2022Q2

REPORT INFORMATION
  Report Type: Spontaneous
  Country: US (occurrence: None)
  Receive Date: 20220518
  Receipt Date: 20220518
  Transmission Date: 20220721
  Serious: No
  Sender: FDA-Public Use
  Company Number: 2022A154971

PATIENT
  Age: 31 Year
  Sex: Female
  Weight: 40.8 kg

DRUGS (1)
  1. PULMICORT FLEXHALER [Suspect]
     Active Substance: BUDESONIDE
     Indication: Asthma
     Dosage: 90MCG VIA INHALATION, 2 PUFFS ONCE DAILY AND MAY INCREASE TO 2 PUFFS TWICE DAILY IF NEEDED
     Route: 055
     Dates: start: 2021

REACTIONS (6)
  - Exposure during pregnancy [Unknown]
  - Asthma [Recovering/Resolving]
  - Hypersensitivity [Recovering/Resolving]
  - Wrong technique in device usage process [Unknown]
  - Intentional product misuse [Unknown]
  - Product use issue [Unknown]

NARRATIVE: CASE EVENT DATE: 20210101
